FAERS Safety Report 6143757-4 (Version None)
Quarter: 2009Q2

REPORT INFORMATION
  Report Type: 
  Country: None (occurrence: None)
  Receive Date: 20090403
  Receipt Date: 20090326
  Transmission Date: 20091009
  Serious: Yes (Other)
  Sender: FDA-Public Use
  Company Number: JP-GENENTECH-280129

PATIENT
  Sex: Male

DRUGS (14)
  1. RITUXIMAB [Suspect]
     Indication: LYMPHOMA
     Dosage: 600 MG, UNK
     Route: 042
     Dates: start: 20080815
  2. CYCLOPHOSPHAMIDE [Concomitant]
     Indication: LYMPHOMA
     Dosage: 1300 MG, UNK
     Dates: start: 20080731, end: 20080801
  3. ONCOVIN [Concomitant]
     Indication: LYMPHOMA
     Dosage: 2 MG, UNK
     Dates: start: 20080731, end: 20080801
  4. ADRIACIN [Concomitant]
     Indication: LYMPHOMA
     Dosage: 90 MG, UNK
     Dates: start: 20080731, end: 20080801
  5. AMARYL [Concomitant]
     Indication: HYPOGLYCAEMIA
     Dosage: 1 MG, QD
     Route: 048
     Dates: start: 20080401, end: 20080815
  6. HOCHUEKKITO [Concomitant]
     Indication: ANOREXIA
     Dosage: 7.5 MG, QD
     Route: 048
     Dates: start: 20080401
  7. URSO 250 [Concomitant]
     Indication: CHRONIC HEPATITIS
     Dosage: 300 MG, QD
     Route: 048
     Dates: start: 20080401
  8. VASOLAN [Concomitant]
     Indication: ATRIAL FIBRILLATION
     Dosage: 120 MG, QD
     Route: 048
     Dates: start: 20080401
  9. NORVASC [Concomitant]
     Indication: HYPERTENSION
     Dosage: 5 MG, QD
     Route: 048
     Dates: start: 20080401
  10. LANSOPRAZOLE [Concomitant]
     Indication: REFLUX OESOPHAGITIS
     Dosage: 30 MG, QD
     Route: 048
     Dates: start: 20080401
  11. DIFLUCAN [Concomitant]
     Indication: CANDIDIASIS
     Dosage: 200 MG, QD
     Route: 048
     Dates: start: 20080801
  12. LEVOFLOXACIN [Concomitant]
     Indication: GASTROINTESTINAL INFECTION
     Dosage: 300 MG, QD
     Route: 048
     Dates: start: 20080801
  13. MAGMITT [Concomitant]
     Indication: CONSTIPATION
     Dosage: 990 MG, QD
     Route: 048
     Dates: start: 20080401
  14. PURSENNID [Concomitant]
     Indication: CONSTIPATION
     Dosage: 24 MG, QD
     Route: 048
     Dates: start: 20080801

REACTIONS (1)
  - HYPOGLYCAEMIA [None]
